FAERS Safety Report 8376681-7 (Version None)
Quarter: 2012Q1

REPORT INFORMATION
  Report Type: 
  Country: None (occurrence: None)
  Receive Date: 20120323
  Receipt Date: 20110208
  Transmission Date: 20120608
  Serious: Yes (Disabling)
  Sender: FDA-Public Use
  Company Number: 163-21880-10120454

PATIENT
  Age: 50 Year
  Sex: Male

DRUGS (2)
  1. REVLIMID [Suspect]
     Indication: MULTIPLE MYELOMA
     Dosage: 25 MG, 21 DAYS ON 7 DAYS OFF, PO
     Route: 048
     Dates: start: 20090701, end: 20100501
  2. VELCADE [Concomitant]

REACTIONS (6)
  - DRUG EFFECT DECREASED [None]
  - MULTIPLE MYELOMA [None]
  - BACK PAIN [None]
  - PROTEIN TOTAL INCREASED [None]
  - NEUROPATHY PERIPHERAL [None]
  - BLOOD IMMUNOGLOBULIN G INCREASED [None]
